FAERS Safety Report 6176594-5 (Version None)
Quarter: 2009Q2

REPORT INFORMATION
  Report Type: 
  Country: None (occurrence: None)
  Receive Date: 20090501
  Receipt Date: 20090421
  Transmission Date: 20091009
  Serious: Yes (Other)
  Sender: FDA-Public Use
  Company Number: AU-ELI_LILLY_AND_COMPANY-AU200904004336

PATIENT
  Sex: Female

DRUGS (6)
  1. BYETTA [Suspect]
     Indication: DIABETES MELLITUS
     Dosage: 5 UG, UNKNOWN
     Route: 065
     Dates: start: 20080504
  2. BYETTA [Suspect]
     Dosage: 10 UG, 2/D
     Route: 065
     Dates: end: 20090323
  3. METFORMIN HCL [Concomitant]
     Indication: DIABETES MELLITUS
     Dosage: UNK, UNKNOWN
     Route: 065
  4. LIPIDIL [Concomitant]
     Indication: BLOOD CHOLESTEROL
     Dosage: UNK, UNKNOWN
     Route: 065
  5. LIPITOR [Concomitant]
     Indication: BLOOD CHOLESTEROL
     Dosage: UNK, UNKNOWN
     Route: 065
  6. COVERSYL PLUS [Concomitant]
     Indication: BLOOD PRESSURE
     Dosage: UNK, UNKNOWN
     Route: 065
     Dates: start: 20090219

REACTIONS (7)
  - ABDOMINAL DISCOMFORT [None]
  - BLOOD GLUCOSE INCREASED [None]
  - BREAST CANCER [None]
  - EMOTIONAL DISORDER [None]
  - FLATULENCE [None]
  - GASTRIC ULCER [None]
  - WEIGHT DECREASED [None]
